FAERS Safety Report 25841871 (Version 2)
Quarter: 2025Q4

REPORT INFORMATION
  Report Type: Spontaneous
  Country: KR (occurrence: KR)
  Receive Date: 20250924
  Receipt Date: 20251016
  Transmission Date: 20260118
  Serious: No
  Sender: PFIZER
  Company Number: KR-PFIZER INC-PV202500114044

PATIENT
  Age: 14 Year

DRUGS (1)
  1. GENOTROPIN [Suspect]
     Active Substance: SOMATROPIN
     Indication: Growth hormone deficiency
     Dosage: 4 IU X6 TIMES WEEKLY
     Dates: start: 20210628

REACTIONS (2)
  - Drug dose omission by device [Unknown]
  - Device information output issue [Unknown]
